FAERS Safety Report 15956962 (Version 8)
Quarter: 2019Q2

REPORT INFORMATION
  Report Type: Spontaneous
  Country: US (occurrence: US)
  Receive Date: 20190213
  Receipt Date: 20190529
  Transmission Date: 20190711
  Serious: Yes (Hospitalization, Other)
  Sender: FDA-Public Use
  Company Number: PHEH2019US005745

PATIENT
  Age: 64 Year
  Sex: Male

DRUGS (2)
  1. AFINITOR [Suspect]
     Active Substance: EVEROLIMUS
     Indication: RENAL CANCER
     Dosage: 5 MG, QD
     Route: 048
  2. LENVATINIB [Suspect]
     Active Substance: LENVATINIB
     Indication: RENAL CANCER
     Dosage: 18 MG, QD
     Route: 048
     Dates: start: 20190201

REACTIONS (18)
  - Abdominal discomfort [Unknown]
  - Constipation [Recovered/Resolved]
  - Back pain [Recovering/Resolving]
  - Hypertension [Unknown]
  - Sleep disorder [Recovering/Resolving]
  - Snoring [Recovered/Resolved]
  - Abdominal pain lower [Recovering/Resolving]
  - Dysphonia [Recovered/Resolved]
  - Constipation [Unknown]
  - Dysphonia [Unknown]
  - Cough [Recovered/Resolved]
  - Oral discomfort [Recovered/Resolved]
  - Nausea [Unknown]
  - Decreased appetite [Recovered/Resolved]
  - Snoring [Unknown]
  - Intestinal obstruction [Unknown]
  - Metastasis [Unknown]
  - Cancer pain [Unknown]

NARRATIVE: CASE EVENT DATE: 20190203
